FAERS Safety Report 7630650-0 (Version None)
Quarter: 2011Q3

REPORT INFORMATION
  Report Type: 
  Country: None (occurrence: None)
  Receive Date: 20110722
  Receipt Date: 20110714
  Transmission Date: 20111222
  Serious: Yes (Hospitalization)
  Sender: FDA-Public Use
  Company Number: US-MILLENNIUM PHARMACEUTICALS, INC.-2011-02741

PATIENT
  Sex: Male
  Weight: 68.481 kg

DRUGS (6)
  1. CELLCEPT [Concomitant]
     Indication: RENAL TRANSPLANT
     Dosage: UNK
  2. TAMSULOSIN HCL [Concomitant]
     Indication: URINARY RETENTION
  3. VELCADE [Suspect]
     Indication: KIDNEY TRANSPLANT REJECTION
     Dosage: 1.3 MG/M2, UNK
     Route: 040
     Dates: start: 20110618, end: 20110618
  4. TACROLIMUS [Concomitant]
     Indication: RENAL TRANSPLANT
     Dosage: 4 MG, BID
  5. RITUXIMAB [Suspect]
     Indication: KIDNEY TRANSPLANT REJECTION
     Dosage: 375 MG/M2, UNK
     Route: 040
     Dates: start: 20110510, end: 20110510
  6. THYMOGLOBULIN [Suspect]
     Indication: KIDNEY TRANSPLANT REJECTION
     Dosage: 100 MG, UNK
     Route: 042
     Dates: start: 20110509, end: 20110522

REACTIONS (2)
  - LEUKOCYTOSIS [None]
  - PYREXIA [None]
